FAERS Safety Report 7221259-1 (Version None)
Quarter: 2011Q1

REPORT INFORMATION
  Report Type: 
  Country: None (occurrence: None)
  Receive Date: 20110112
  Receipt Date: 20110103
  Transmission Date: 20110831
  Serious: Yes (Hospitalization)
  Sender: FDA-Public Use
  Company Number: GR-SHIRE-SPV1-2010-02086

PATIENT
  Sex: Male
  Weight: 60 kg

DRUGS (3)
  1. SULFASALAZINE [Suspect]
     Indication: COLITIS ULCERATIVE
     Dosage: UNK
  2. LOSEC                              /00661201/ [Concomitant]
     Indication: PRODUCT USED FOR UNKNOWN INDICATION
     Dosage: UNK, 1X/DAY:QD MORNING
     Route: 065
  3. MEZAVANT [Suspect]
     Indication: COLITIS ULCERATIVE
     Dosage: 1.2 G, 1X/DAY:QD
     Route: 048
     Dates: start: 20090701, end: 20101001

REACTIONS (2)
  - METASTASES TO LUNG [None]
  - MYELITIS [None]
